FAERS Safety Report 8430337-0 (Version None)
Quarter: 2012Q2

REPORT INFORMATION
  Report Type: 
  Country: None (occurrence: None)
  Receive Date: 20120612
  Receipt Date: 20120601
  Transmission Date: 20120825
  Serious: Yes (Other)
  Sender: FDA-Public Use
  Company Number: JP-ALEXION PHARMACEUTICALS INC.-A201201101

PATIENT
  Age: 48 Year
  Sex: Female

DRUGS (3)
  1. NEORAL [Suspect]
     Dosage: 100 MG, UNK
  2. EXJADE [Concomitant]
     Dosage: 1000 MG, UNK
     Dates: start: 20080918
  3. SOLIRIS [Suspect]
     Indication: PAROXYSMAL NOCTURNAL HAEMOGLOBINURIA
     Dosage: 900 MG, Q2W
     Route: 042
     Dates: start: 20101122

REACTIONS (2)
  - HERPES ZOSTER [None]
  - TRANSFUSION [None]
